FAERS Safety Report 21199395 (Version 3)
Quarter: 2022Q4

REPORT INFORMATION
  Report Type: Report from Study
  Country: US (occurrence: US)
  Receive Date: 20220811
  Receipt Date: 20221004
  Transmission Date: 20230113
  Serious: Yes (Death, Other)
  Sender: FDA-Public Use
  Company Number: US-UCBSA-2022044471

PATIENT
  Age: 87 Year
  Sex: Female
  Weight: 63 kg

DRUGS (1)
  1. LEVETIRACETAM [Suspect]
     Active Substance: LEVETIRACETAM
     Indication: Seizure
     Dosage: 500 MILLIGRAM, 2X/DAY (BID)
     Route: 048
     Dates: end: 20220709

REACTIONS (8)
  - Haemorrhage intracranial [Fatal]
  - Respiratory distress [Fatal]
  - Haemorrhagic stroke [Fatal]
  - Loss of consciousness [Fatal]
  - Fall [Fatal]
  - Haematoma [Fatal]
  - Unresponsive to stimuli [Unknown]
  - Dyspnoea [Unknown]

NARRATIVE: CASE EVENT DATE: 20220707
